FAERS Safety Report 21125347 (Version 1)
Quarter: 2022Q3

REPORT INFORMATION
  Report Type: Spontaneous
  Country: US (occurrence: US)
  Receive Date: 20220725
  Receipt Date: 20220725
  Transmission Date: 20221027
  Serious: Yes (Other)
  Sender: FDA-Public Use
  Company Number: US-PFIZER INC-202200994614

PATIENT
  Age: 79 Year
  Sex: Female

DRUGS (7)
  1. ACETYLCYSTEINE [Suspect]
     Active Substance: ACETYLCYSTEINE
     Dosage: 2 ML, 4X/DAY, (2ML 4 TIMES A DAY)
  2. MUCOMYST [Suspect]
     Active Substance: ACETYLCYSTEINE
     Dosage: 2 ML, 4X/DAY, [4 TIMES A DAY, 2 ML FOR ONE MONTH]
  3. BRILINTA [Concomitant]
     Active Substance: TICAGRELOR
     Indication: Anticoagulant therapy
     Dosage: 90 MG, 2X/DAY, [90MG, TWICE A DAY]
  4. REPATHA [Concomitant]
     Active Substance: EVOLOCUMAB
     Indication: Blood cholesterol increased
     Dosage: UNK, (140MG/1ML, TWICE A MONTH)
  5. LASIX [Concomitant]
     Active Substance: FUROSEMIDE
     Indication: Diuretic therapy
     Dosage: 40 MG
  6. DOXAZOSIN [Concomitant]
     Active Substance: DOXAZOSIN MESYLATE
     Indication: Blood pressure measurement
     Dosage: 4 MG, 1X/DAY
  7. SOLU-MEDROL [Concomitant]
     Active Substance: METHYLPREDNISOLONE SODIUM SUCCINATE
     Dosage: 40 MG, 4X/DAY, (40 MG FOUR TIMES A DAY)

REACTIONS (5)
  - Hypertension [Not Recovered/Not Resolved]
  - Product odour abnormal [Unknown]
  - Illness [Unknown]
  - Infection [Unknown]
  - Blood potassium increased [Unknown]

NARRATIVE: CASE EVENT DATE: 20220719
